FAERS Safety Report 8337478-7 (Version None)
Quarter: 2012Q2

REPORT INFORMATION
  Report Type: 
  Country: None (occurrence: None)
  Receive Date: 20120504
  Receipt Date: 20120427
  Transmission Date: 20120825
  Serious: No
  Sender: FDA-Public Use
  Company Number: US-B.I. PHARMACEUTICALS,INC./RIDGEFIELD-2012-BP-09698BP

PATIENT
  Age: 80 Year
  Sex: Female

DRUGS (10)
  1. PROTONIX [Concomitant]
     Indication: GASTROOESOPHAGEAL REFLUX DISEASE
     Dosage: 80 MG
     Route: 048
     Dates: start: 20060101
  2. LASIX [Concomitant]
     Indication: CARDIAC FAILURE CONGESTIVE
     Dosage: 80 MG
     Route: 048
     Dates: start: 20030101
  3. PRADAXA [Suspect]
     Indication: ATRIAL FIBRILLATION
     Dosage: 300 MG
     Route: 048
     Dates: start: 20120201, end: 20120426
  4. DIGOXIN [Concomitant]
     Indication: ATRIAL FIBRILLATION
     Dosage: 0.125 MG
     Route: 048
     Dates: start: 20020101
  5. VITAMIN B-12 [Concomitant]
     Indication: HAEMOPHILIA
     Dates: start: 20100101
  6. TIAZAC [Concomitant]
     Indication: CARDIAC FAILURE CONGESTIVE
     Dosage: 360 MG
     Route: 048
     Dates: start: 20110101
  7. LORTAB [Concomitant]
     Indication: PAIN
     Route: 048
     Dates: start: 20110101
  8. PAMINE [Concomitant]
     Indication: GASTROOESOPHAGEAL REFLUX DISEASE
     Dosage: 5 MG
     Route: 048
     Dates: start: 20060101
  9. COZAAR [Concomitant]
     Indication: ATRIAL FIBRILLATION
     Dosage: 100 MG
     Route: 048
     Dates: start: 20020101
  10. LIPITOR [Concomitant]
     Indication: BLOOD CHOLESTEROL INCREASED
     Dosage: (TABLET) STRENGTH: 40 MG; DAILY DOSE: 40 MG
     Route: 048
     Dates: start: 20110101

REACTIONS (4)
  - NAUSEA [None]
  - PAIN IN EXTREMITY [None]
  - ABDOMINAL PAIN UPPER [None]
  - ARTHRALGIA [None]
